FAERS Safety Report 24594382 (Version 1)
Quarter: 2024Q4

REPORT INFORMATION
  Report Type: Spontaneous
  Country: CN (occurrence: CN)
  Receive Date: 20241108
  Receipt Date: 20241108
  Transmission Date: 20250114
  Serious: Yes (Hospitalization, Other)
  Sender: SANOFI AVENTIS
  Company Number: CN-ASTELLAS-2024-AER-015819

PATIENT
  Age: 76 Year
  Sex: Male

DRUGS (2)
  1. HARNAL [Suspect]
     Active Substance: TAMSULOSIN HYDROCHLORIDE
     Indication: Micturition disorder
     Dosage: 0.2 MG QD SOMETIMES FORGETFULNESS AND DID NOT TAKE IT FOR A FEW DAYS
     Dates: start: 202410, end: 202410
  2. HARNAL [Suspect]
     Active Substance: TAMSULOSIN HYDROCHLORIDE
     Dosage: 0.2 MG, QD
     Dates: start: 202410, end: 202410

REACTIONS (11)
  - Hallucination [Unknown]
  - Depressed level of consciousness [Unknown]
  - Nasopharyngitis [Unknown]
  - Mental disorder [Unknown]
  - Fear [Unknown]
  - Fall [Unknown]
  - Gait disturbance [Unknown]
  - Disorganised speech [Unknown]
  - Memory impairment [Unknown]
  - Blood pressure decreased [Recovering/Resolving]
  - Product dose omission in error [Unknown]

NARRATIVE: CASE EVENT DATE: 20241001
